FAERS Safety Report 25591177 (Version 1)
Quarter: 2025Q3

REPORT INFORMATION
  Report Type: Spontaneous
  Country: CN (occurrence: CN)
  Receive Date: 20250722
  Receipt Date: 20250722
  Transmission Date: 20251020
  Serious: Yes (Hospitalization)
  Sender: ELI LILLY AND COMPANY
  Company Number: CN-Merck Healthcare KGaA-2025035906

PATIENT
  Age: 38 Year
  Sex: Male

DRUGS (4)
  1. ERBITUX [Suspect]
     Active Substance: CETUXIMAB
     Indication: Tongue neoplasm malignant stage unspecified
     Dosage: 700 MG, WEEKLY (1/W)
     Route: 041
     Dates: start: 20250611, end: 20250611
  2. TISLELIZUMAB [Suspect]
     Active Substance: TISLELIZUMAB
     Indication: Tongue neoplasm malignant stage unspecified
     Dosage: 200 MG, DAILY
     Route: 041
     Dates: start: 20250611, end: 20250611
  3. CARBOPLATIN [Suspect]
     Active Substance: CARBOPLATIN
     Indication: Tongue neoplasm malignant stage unspecified
     Dosage: 0.5 G, DAILY
     Route: 041
     Dates: start: 20250611, end: 20250611
  4. FLUOROURACIL [Suspect]
     Active Substance: FLUOROURACIL
     Indication: Tongue neoplasm malignant stage unspecified
     Dosage: 1.75 G, DAILY
     Route: 041
     Dates: start: 20250611, end: 20250615

REACTIONS (1)
  - Myelosuppression [Recovering/Resolving]

NARRATIVE: CASE EVENT DATE: 20250702
